FAERS Safety Report 23382486 (Version 1)
Quarter: 2024Q1

REPORT INFORMATION
  Report Type: Spontaneous
  Country: US (occurrence: US)
  Receive Date: 20240109
  Receipt Date: 20240109
  Transmission Date: 20240410
  Serious: No
  Sender: FDA-Public Use
  Company Number: US-GALDERMA-US2023019068

PATIENT

DRUGS (4)
  1. PROACTIV MD ADAPALENE ACNE TREATMENT [Suspect]
     Active Substance: ADAPALENE
     Indication: Acne
     Dosage: 1 DOSAGE FORM, QD, PEA SIZE
     Route: 061
     Dates: start: 202309, end: 202310
  2. Proactiv MD Ultra Gentle Cleanser [Concomitant]
     Indication: Acne
     Dosage: 1 DOSAGE FORM, BID, PEA SIZE
     Route: 061
     Dates: start: 202309, end: 202310
  3. Proactiv MD Ultra Hydrating Moisturizer [Concomitant]
     Indication: Acne
     Dosage: 1 DOSAGE FORM, BID, PEA SIZE
     Route: 061
     Dates: start: 202309, end: 202310
  4. Proactiv Zits Happen Patches [Concomitant]
     Indication: Acne
     Dosage: 1 DOSAGE FORM, BID, PEA SIZE
     Route: 061
     Dates: start: 202309, end: 202310

REACTIONS (4)
  - Dry skin [Recovering/Resolving]
  - Acne [Recovering/Resolving]
  - Pain of skin [Recovering/Resolving]
  - Erythema [Recovering/Resolving]

NARRATIVE: CASE EVENT DATE: 20230901
